FAERS Safety Report 9272955 (Version 2)
Quarter: 2013Q2

REPORT INFORMATION
  Report Type: Spontaneous
  Country: JP (occurrence: JP)
  Receive Date: 20130506
  Receipt Date: 20130530
  Transmission Date: 20140414
  Serious: No
  Sender: FDA-Public Use
  Company Number: JP-B.I. PHARMACEUTICALS,INC./RIDGEFIELD-2013-BI-11434NB

PATIENT
  Age: 70 Year
  Sex: Male

DRUGS (1)
  1. MIRAPEX LA [Suspect]
     Dosage: 0.75 MG
     Route: 048

REACTIONS (1)
  - Inappropriate schedule of drug administration [Unknown]
